FAERS Safety Report 20348104 (Version 2)
Quarter: 2022Q1

REPORT INFORMATION
  Report Type: Other
  Country: US (occurrence: US)
  Receive Date: 20220118
  Receipt Date: 20220218
  Transmission Date: 20220423
  Serious: No
  Sender: FDA-Public Use
  Company Number: US-NEUROCRINE BIOSCIENCES INC.-2022NBI00228

PATIENT

DRUGS (18)
  1. INGREZZA [Suspect]
     Active Substance: VALBENAZINE
     Indication: Tardive dyskinesia
     Dosage: 80 MILLIGRAM, QD
     Route: 048
     Dates: start: 20211211, end: 20220112
  2. INGREZZA [Suspect]
     Active Substance: VALBENAZINE
     Dosage: 40 MILLIGRAM, QD
     Route: 048
     Dates: start: 20211203, end: 20211210
  3. VITAMIN B6 [Concomitant]
     Active Substance: PYRIDOXINE HYDROCHLORIDE
     Dosage: TAKE 1 TABET BY MOUTH ONCE A DAY
     Route: 048
  4. OXYBUTYNIN CHLORIDE [Concomitant]
     Active Substance: OXYBUTYNIN CHLORIDE
     Dosage: 2 TABET BY MOUTH ONCE A DAY
     Route: 048
  5. LIPITOR [Concomitant]
     Active Substance: ATORVASTATIN CALCIUM
     Dosage: 1 TABLET BY MOUTH ONCE A DAY
     Route: 048
  6. SPIRONOLACTONE [Concomitant]
     Active Substance: SPIRONOLACTONE
     Dosage: 1 TABLET BY MOUTH ONCE A DAY
     Route: 048
  7. RESTASIS [Concomitant]
     Active Substance: CYCLOSPORINE
     Dosage: AS DIRECTED
  8. LABETALOL [Concomitant]
     Active Substance: LABETALOL\LABETALOL HYDROCHLORIDE
     Dosage: 1 TABLET BY MOUTH ONCE A DAY
     Route: 048
  9. VITAMIN D3 [Concomitant]
     Active Substance: CHOLECALCIFEROL
     Dosage: 1 TABLET BY MOUTH ONCE A DAY
     Route: 048
  10. ANTIVERT [Concomitant]
     Active Substance: MECLIZINE HYDROCHLORIDE
     Dosage: 1 TABLET EVERY SIX HOURS AS NEEDED
  11. LYRICA [Concomitant]
     Active Substance: PREGABALIN
     Dosage: 1 CAPSULE BY MOUTH TWICE A DAY
     Route: 048
  12. OMEPRAZOLE MAGNESIUM [Concomitant]
     Active Substance: OMEPRAZOLE MAGNESIUM
     Dosage: 1 BY MOUTH ONCE A DAY
     Route: 048
  13. FUROSEMIDE [Concomitant]
     Active Substance: FUROSEMIDE
     Dosage: 1 BY MOUTH ONCE A DAY
     Route: 048
  14. DEPAKOTE [Concomitant]
     Active Substance: DIVALPROEX SODIUM
     Dosage: TAKE 1 TABLET BY MOUTH TWICE A DAY
     Route: 048
  15. CLONAZEPAM [Concomitant]
     Active Substance: CLONAZEPAM
     Dosage: TAKE 1 TABET BY MOUTH THREE TIMES A DAY
     Route: 048
  16. SERTRALINE [Concomitant]
     Active Substance: SERTRALINE HYDROCHLORIDE
     Dosage: TAKE 1.5 MG TABLET BY MOUTH ONCE A DAY
     Route: 048
  17. AUSTEDO [Concomitant]
     Active Substance: DEUTETRABENAZINE
     Dosage: TAKE 1 TABLET BY TWICE A DAY
     Route: 048
  18. RISPERIDONE [Concomitant]
     Active Substance: RISPERIDONE
     Dosage: TAKE 1 TABLET BY MOUTH EVERY NIGHT TAKE WITH THE 0.5 MG TABLET
     Route: 048

REACTIONS (1)
  - Tremor [Recovering/Resolving]

NARRATIVE: CASE EVENT DATE: 20220104
